FAERS Safety Report 9345958 (Version 2)
Quarter: 2013Q3

REPORT INFORMATION
  Report Type: Spontaneous
  Country: US (occurrence: US)
  Receive Date: 20130613
  Receipt Date: 20130801
  Transmission Date: 20140515
  Serious: No
  Sender: FDA-Public Use
  Company Number: US-PFIZER INC-2013177440

PATIENT
  Age: 57 Year
  Sex: Male
  Weight: 83.9 kg

DRUGS (10)
  1. CHANTIX [Suspect]
     Indication: SMOKING CESSATION THERAPY
     Dosage: 1 MG, 2X/DAY
     Route: 048
     Dates: start: 20130218
  2. VIAGRA [Suspect]
     Indication: ERECTILE DYSFUNCTION
     Dosage: 100 MG, AS NEEDED
     Dates: start: 2011
  3. GLUCOVANCE [Concomitant]
     Indication: DIABETES MELLITUS
     Dosage: [GLIBENCLAMIDE 5 MG]/ [METFORMIN HYDROCHLORIDE 500 MG], 2X/DAY
  4. ISENTRESS [Concomitant]
     Dosage: 400 MG, 2X/DAY
  5. PRAVASTATIN [Concomitant]
     Dosage: 40 MG, UNK
  6. REYATAZ [Concomitant]
     Dosage: 200 MG, 2X/DAY
  7. ZIDOVUDINE [Concomitant]
     Dosage: 300 MG, 2X/DAY
  8. METOPROLOL [Concomitant]
     Dosage: 100 MG, UNK
  9. GEMFIBROZIL [Concomitant]
     Dosage: 600 MG, UNK
  10. SEROQUEL [Concomitant]
     Dosage: 400 MG, UNK

REACTIONS (2)
  - Diarrhoea [Recovered/Resolved]
  - Visual brightness [Unknown]
